FAERS Safety Report 17984993 (Version 1)
Quarter: 2020Q3

REPORT INFORMATION
  Report Type: Spontaneous
  Country: FR (occurrence: FR)
  Receive Date: 20200706
  Receipt Date: 20200706
  Transmission Date: 20201103
  Serious: Yes (Other)
  Sender: FDA-Public Use
  Company Number: FR-PFIZER INC-2020253120

PATIENT
  Age: 85 Year
  Sex: Female
  Weight: 43 kg

DRUGS (5)
  1. RAMIPRIL ZENTIVA [Suspect]
     Active Substance: RAMIPRIL
     Indication: CEREBROVASCULAR ACCIDENT
  2. NICARDIPINE [Suspect]
     Active Substance: NICARDIPINE
     Route: 065
     Dates: start: 20200320
  3. LEVETIRACETAM. [Suspect]
     Active Substance: LEVETIRACETAM
     Route: 065
     Dates: start: 20200320
  4. ACETYLSALICYLIC ACID [Concomitant]
     Active Substance: ASPIRIN
     Route: 065
  5. RAMIPRIL ZENTIVA [Suspect]
     Active Substance: RAMIPRIL
     Indication: PARTIAL SEIZURES
     Route: 048
     Dates: start: 20200320

REACTIONS (5)
  - Cough [Not Recovered/Not Resolved]
  - Hypertension [Not Recovered/Not Resolved]
  - Erythema [Not Recovered/Not Resolved]
  - Paraesthesia [Not Recovered/Not Resolved]
  - Hot flush [Not Recovered/Not Resolved]
